FAERS Safety Report 4778141-9 (Version None)
Quarter: 2005Q3

REPORT INFORMATION
  Report Type: 
  Country: None (occurrence: None)
  Receive Date: 20050922
  Receipt Date: 20050909
  Transmission Date: 20060218
  Serious: Yes (Other)
  Sender: FDA-Public Use
  Company Number: 2005113885

PATIENT
  Age: 58 Year
  Sex: Female
  Weight: 42.1845 kg

DRUGS (13)
  1. NICOTROL [Suspect]
     Indication: SMOKING CESSATION THERAPY
     Dosage: 1 CARTRIDGE 4 TIMES DAILY, INHALATION
     Route: 055
     Dates: start: 20050101, end: 20050903
  2. NICOTROL [Suspect]
  3. NICOTROL [Suspect]
  4. LISINOPRIL [Concomitant]
  5. FOLIC ACID [Concomitant]
  6. MELOXICAM (MELOXICAM) [Concomitant]
  7. DIPHENHYDRAMINE HCL [Concomitant]
  8. PHENYTOIN SODIUM [Concomitant]
  9. METOPROLOL TARTRATE [Concomitant]
  10. METHOCARBAMOL [Concomitant]
  11. PHENOBARBITAL TAB [Concomitant]
  12. DIAZEPAM [Concomitant]
  13. AMITRIPTYLINE HCL [Concomitant]

REACTIONS (5)
  - BLOOD PRESSURE INCREASED [None]
  - CONDITION AGGRAVATED [None]
  - HEADACHE [None]
  - MIGRAINE [None]
  - NICOTINE DEPENDENCE [None]
